FAERS Safety Report 7931065-8 (Version None)
Quarter: 2011Q4

REPORT INFORMATION
  Report Type: 
  Country: None (occurrence: None)
  Receive Date: 20111118
  Receipt Date: 20111118
  Transmission Date: 20120403
  Serious: No
  Sender: FDA-Public Use
  Company Number: None

PATIENT
  Sex: Female
  Weight: 43.0917 kg

DRUGS (1)
  1. PENICILLIN VK [Suspect]
     Indication: ABDOMINAL PAIN UPPER
     Dosage: 42 1 EVERY 4 HRS 10/26/11 1/2 DAY  10/27/11 - 1 1/2 DAY  10/28/11

REACTIONS (2)
  - ABDOMINAL PAIN UPPER [None]
  - TOOTH ABSCESS [None]
